FAERS Safety Report 11436936 (Version 2)
Quarter: 2015Q4

REPORT INFORMATION
  Report Type: Spontaneous
  Country: US (occurrence: US)
  Receive Date: 20150831
  Receipt Date: 20151012
  Transmission Date: 20160304
  Serious: Yes (Other)
  Sender: FDA-Public Use
  Company Number: US-PFIZER INC-2015286432

PATIENT
  Age: 41 Year
  Sex: Female

DRUGS (3)
  1. SYNTHROID [Suspect]
     Active Substance: LEVOTHYROXINE SODIUM
     Dosage: UNK
  2. LEVOTHYROXINE SODIUM. [Suspect]
     Active Substance: LEVOTHYROXINE SODIUM
     Dosage: UNK
  3. ARMOUR THYROID [Suspect]
     Active Substance: THYROID, PORCINE\THYROID, UNSPECIFIED
     Dosage: UNK

REACTIONS (11)
  - Heart rate increased [Unknown]
  - Alopecia [Unknown]
  - Psychomotor hyperactivity [Unknown]
  - Decreased activity [Unknown]
  - Drug ineffective [Unknown]
  - Dry skin [Unknown]
  - Hair texture abnormal [Unknown]
  - Feeling abnormal [Unknown]
  - Peripheral coldness [Unknown]
  - Blood pressure increased [Unknown]
  - Fatigue [Unknown]
